FAERS Safety Report 8885437 (Version 3)
Quarter: 2012Q4

REPORT INFORMATION
  Report Type: 
  Country: JP (occurrence: JP)
  Receive Date: 20121105
  Receipt Date: 20121226
  Transmission Date: 20130627
  Serious: Yes (Other)
  Sender: FDA-Public Use
  Company Number: JP-JNJFOC-20121016406

PATIENT
  Age: 77 Year
  Sex: Female

DRUGS (5)
  1. RISPERDAL [Suspect]
     Indication: DEMENTIA ALZHEIMER^S TYPE
     Route: 048
  2. GRAMALIL [Concomitant]
     Indication: DEMENTIA ALZHEIMER^S TYPE
     Route: 048
  3. DESYREL [Concomitant]
     Indication: DEMENTIA ALZHEIMER^S TYPE
     Route: 048
  4. ROZEREM [Concomitant]
     Indication: DEMENTIA ALZHEIMER^S TYPE
     Route: 048
  5. ABILIFY [Concomitant]
     Indication: DEMENTIA ALZHEIMER^S TYPE
     Route: 048

REACTIONS (2)
  - Pneumonia aspiration [Recovered/Resolved]
  - Sedation [Unknown]
